FAERS Safety Report 19025191 (Version 3)
Quarter: 2021Q2

REPORT INFORMATION
  Report Type: Spontaneous
  Country: JP (occurrence: JP)
  Receive Date: 20210318
  Receipt Date: 20210413
  Transmission Date: 20210717
  Serious: Yes (Hospitalization, Other)
  Sender: FDA-Public Use
  Company Number: JP-ASTELLAS-2021JP003391

PATIENT
  Age: 68 Year
  Sex: Male

DRUGS (1)
  1. BETANIS [Suspect]
     Active Substance: MIRABEGRON
     Indication: NOCTURIA
     Route: 048
     Dates: start: 20210217, end: 20210219

REACTIONS (3)
  - Tremor [Unknown]
  - Subdural haematoma [Unknown]
  - Movement disorder [Unknown]

NARRATIVE: CASE EVENT DATE: 20210218
